FAERS Safety Report 10037493 (Version 4)
Quarter: 2014Q2

REPORT INFORMATION
  Report Type: Spontaneous
  Country: US (occurrence: US)
  Receive Date: 20140326
  Receipt Date: 20140521
  Transmission Date: 20141212
  Serious: Yes (Hospitalization, Other)
  Sender: FDA-Public Use
  Company Number: US-UCBSA-066571

PATIENT
  Age: 84 Year
  Sex: Male
  Weight: 77.11 kg

DRUGS (20)
  1. CIMZIA [Suspect]
     Indication: CROHN^S DISEASE
     Dates: start: 20091007
  2. CIMZIA [Suspect]
     Indication: CROHN^S DISEASE
     Dosage: LOT NO: 96834; EXPIRATION DATE: ??-DEC-2015; EXPIRY DATE: APR/2016
     Dates: start: 20120919, end: 20140219
  3. CIMZIA [Suspect]
     Indication: CROHN^S DISEASE
     Dates: start: 2014
  4. BUDESONIDE EC [Concomitant]
     Indication: CROHN^S DISEASE
     Dosage: 3 MG 2 ONCE DIALY
     Route: 048
  5. ASCOL HD DR [Concomitant]
     Indication: CROHN^S DISEASE
     Dosage: 800 MG ONE TABLET TWICE DAILY
     Route: 048
  6. AMOX TR-K CLV [Concomitant]
     Indication: KIDNEY INFECTION
     Dosage: 875 - 125 MG ONE TAB TWICE DAILY
     Route: 048
  7. AMOX TR-K CLV [Concomitant]
     Indication: LUNG INFECTION
     Dosage: 875 - 125 MG ONE TAB TWICE DAILY
     Route: 048
  8. HYDRALAZINE [Concomitant]
     Indication: BLOOD PRESSURE
     Route: 048
  9. CARVEDILOL [Concomitant]
     Indication: BLOOD PRESSURE
     Route: 048
  10. URSODIOL [Concomitant]
     Indication: CHOLELITHIASIS
     Route: 048
  11. FLOMAX HCL [Concomitant]
     Indication: BENIGN PROSTATIC HYPERPLASIA
     Route: 048
  12. BENZONATATE [Concomitant]
     Indication: COUGH
     Dosage: ONCE IN 6 HOURS AS REQUIRED
     Route: 048
  13. ATIVAN [Concomitant]
     Indication: ANXIETY
     Dosage: ONCE AT NIGHT
     Route: 048
  14. PRILOSEC [Concomitant]
     Indication: HYPERCHLORHYDRIA
     Route: 048
  15. MUCINEX [Concomitant]
     Indication: INCREASED VISCOSITY OF BRONCHIAL SECRETION
     Route: 048
  16. TYLENOL PM [Concomitant]
     Indication: INSOMNIA
     Dosage: 500 MG TYOLENOL/25 BENADRYL
     Route: 048
  17. NOVOLOG PEN [Concomitant]
     Indication: DIABETES MELLITUS
     Dosage: 1 UNIT OF INSULIN PER 8 GRAMS OF CARBS WITH MEALS, DOSE VARIES.
  18. LANTUS [Concomitant]
     Indication: DIABETES MELLITUS
     Dosage: 13 UNITS
  19. ALBUTEROL SULFATE NEBULIZER [Concomitant]
     Indication: LUNG INFECTION
     Dosage: ONCE AT BEDTIME; NEBULIZER
  20. BUDESONIDE INHALATION SUSPENSION [Concomitant]
     Indication: LUNG INFECTION
     Dosage: ONCE AT MIDDAY; NEBULIZER

REACTIONS (11)
  - Cardiac failure congestive [Not Recovered/Not Resolved]
  - Diarrhoea [Recovered/Resolved]
  - Oedema [Not Recovered/Not Resolved]
  - Dyspnoea [Not Recovered/Not Resolved]
  - Dizziness [Not Recovered/Not Resolved]
  - Asthenia [Not Recovered/Not Resolved]
  - Lung infection [Recovering/Resolving]
  - Urinary tract infection [Recovering/Resolving]
  - Depression [Not Recovered/Not Resolved]
  - Respiratory tract infection [Not Recovered/Not Resolved]
  - Inappropriate schedule of drug administration [Recovered/Resolved]
